FAERS Safety Report 8960539 (Version 1)
Quarter: 2012Q4

REPORT INFORMATION
  Report Type: Spontaneous
  Country: FR (occurrence: None)
  Receive Date: 20121203
  Receipt Date: 20121203
  Transmission Date: 20130627
  Serious: Yes (Hospitalization, Other)
  Sender: FDA-Public Use
  Company Number: 2012000254

PATIENT
  Sex: Male

DRUGS (7)
  1. ACEON (PERINDOPRIL ERBUMINE) TABLET [Suspect]
     Indication: PRODUCT USED FOR UNKNOWN INDICATION
     Route: 048
  2. PREDNISONE [Suspect]
     Route: 048
  3. DIGOXIN [Suspect]
     Route: 048
     Dates: end: 2012
  4. INEXIUM [Suspect]
  5. KARDEGIC [Suspect]
     Route: 048
  6. LASILIX [Suspect]
     Route: 048
  7. PREVISCAN (FLUINDIONE) [Suspect]
     Route: 048

REACTIONS (9)
  - Atrial fibrillation [None]
  - Bradycardia [None]
  - Renal failure chronic [None]
  - Vertigo [None]
  - Anaemia [None]
  - Abdominal pain [None]
  - Medication error [None]
  - Cardiac failure [None]
  - Overdose [None]
